FAERS Safety Report 24622084 (Version 2)
Quarter: 2024Q4

REPORT INFORMATION
  Report Type: Report from Study
  Country: KR (occurrence: KR)
  Receive Date: 20241114
  Receipt Date: 20241202
  Transmission Date: 20250114
  Serious: Yes (Hospitalization, Other)
  Sender: ABBVIE
  Company Number: KR-ABBVIE-5995644

PATIENT
  Age: 75 Year
  Sex: Female
  Weight: 51 kg

DRUGS (72)
  1. VENCLEXTA [Suspect]
     Active Substance: VENETOCLAX
     Indication: Acute myeloid leukaemia
     Route: 048
     Dates: start: 20241025, end: 20241121
  2. TWOLION [Concomitant]
     Indication: Rash
     Route: 048
     Dates: start: 20241115, end: 20241121
  3. NOXAFIL [Concomitant]
     Active Substance: POSACONAZOLE
     Indication: Antifungal prophylaxis
     Dosage: 100 MG
     Route: 048
     Dates: start: 20211025, end: 20241126
  4. EXJADE [Concomitant]
     Active Substance: DEFERASIROX
     Indication: Prophylaxis
     Dosage: 360 MG
     Route: 048
     Dates: start: 20241104, end: 20241113
  5. EXJADE [Concomitant]
     Active Substance: DEFERASIROX
     Indication: Prophylaxis
     Dosage: 180 MG
     Route: 048
     Dates: start: 20241031, end: 20241103
  6. HERBALS [Concomitant]
     Active Substance: HERBALS
     Indication: Prophylaxis
     Route: 048
     Dates: start: 20241120
  7. COUGH NOS [Concomitant]
     Active Substance: UNSPECIFIED INGREDIENT
     Indication: Cough
     Dosage: TIME INTERVAL: 0.33333333 DAYS: 20 ML
     Route: 048
     Dates: start: 20241106, end: 20241122
  8. COUGH NOS [Concomitant]
     Active Substance: UNSPECIFIED INGREDIENT
     Indication: Cough
     Dosage: 20 ML
     Route: 048
     Dates: start: 20241026, end: 20241027
  9. COUGH NOS [Concomitant]
     Active Substance: UNSPECIFIED INGREDIENT
     Indication: Cough
     Dosage: TIME INTERVAL: 0.33333333 DAYS
     Dates: start: 20241127
  10. COUGH NOS [Concomitant]
     Active Substance: UNSPECIFIED INGREDIENT
     Indication: Cough
     Route: 048
     Dates: start: 20241125, end: 20241126
  11. DEXID [Concomitant]
     Indication: Diabetic neuropathy
     Route: 048
     Dates: start: 20240930, end: 20241126
  12. Bukwang midazolam [Concomitant]
     Indication: Premedication
     Dosage: 3MG/3ML
     Route: 042
     Dates: start: 20241106, end: 20241106
  13. CODEINE PHOSPHATE [Concomitant]
     Active Substance: CODEINE PHOSPHATE
     Indication: Cough
     Route: 048
     Dates: start: 20241109, end: 20241120
  14. CODEINE PHOSPHATE [Concomitant]
     Active Substance: CODEINE PHOSPHATE
     Indication: Cough
     Dosage: TIME INTERVAL: 0.33333333 DAYS
     Route: 048
     Dates: start: 20241109, end: 20241111
  15. SULFAMETHOXAZOLE\TRIMETHOPRIM [Concomitant]
     Active Substance: SULFAMETHOXAZOLE\TRIMETHOPRIM
     Indication: Infection prophylaxis
     Route: 048
     Dates: start: 20241107, end: 20241108
  16. SULFAMETHOXAZOLE\TRIMETHOPRIM [Concomitant]
     Active Substance: SULFAMETHOXAZOLE\TRIMETHOPRIM
     Indication: Infection prophylaxis
     Route: 048
     Dates: start: 20241106, end: 20241106
  17. SULFAMETHOXAZOLE\TRIMETHOPRIM [Concomitant]
     Active Substance: SULFAMETHOXAZOLE\TRIMETHOPRIM
     Indication: Infection prophylaxis
     Route: 048
     Dates: start: 20241113, end: 20241119
  18. Dong a gaster [Concomitant]
     Indication: Gastritis prophylaxis
     Dosage: 20 MG
     Route: 048
     Dates: start: 20241104, end: 20241112
  19. Dulackhan easy [Concomitant]
     Indication: Constipation
     Dosage: 500ML
     Route: 048
     Dates: start: 20241111
  20. PARACON [Concomitant]
     Indication: Pyrexia
     Dosage: FREQUENCY TEXT: PRN, 75 ML
     Route: 042
     Dates: start: 20241026
  21. TAPOCIN [Concomitant]
     Indication: Pyrexia
     Dosage: 400MG
     Route: 042
     Dates: start: 20241104, end: 20241121
  22. PENIRAMIN [Concomitant]
     Indication: Premedication
     Dosage: FREQUENCY TEXT: PRN
     Route: 042
     Dates: start: 20241024, end: 20241121
  23. Anplag sr [Concomitant]
     Indication: Vascular disorder prophylaxis
     Dosage: 300MG
     Route: 048
     Dates: start: 20240930, end: 20241025
  24. SYNTHROID [Concomitant]
     Active Substance: LEVOTHYROXINE SODIUM
     Indication: Thyroid cancer
     Dosage: 0.1 MG
     Route: 048
     Dates: start: 20210730
  25. NOVORAPID [Concomitant]
     Active Substance: INSULIN ASPART
     Indication: Diabetes mellitus
     Dosage: UNIT DOSE : UKIU?100UNIT/ML
     Route: 058
     Dates: start: 20241107
  26. Furix [Concomitant]
     Indication: Oedema
     Dosage: 40 MG
     Route: 048
     Dates: start: 20241104, end: 20241119
  27. TRAZODONE HYDROCHLORIDE [Concomitant]
     Active Substance: TRAZODONE HYDROCHLORIDE
     Indication: Insomnia
     Dosage: 25 MG
     Route: 048
     Dates: start: 20241106, end: 20241111
  28. TRAZODONE HYDROCHLORIDE [Concomitant]
     Active Substance: TRAZODONE HYDROCHLORIDE
     Indication: Insomnia
     Dosage: 25 MG
     Route: 048
     Dates: start: 20241105, end: 20241105
  29. TRAZODONE HYDROCHLORIDE [Concomitant]
     Active Substance: TRAZODONE HYDROCHLORIDE
     Indication: Insomnia
     Dosage: 25 MG
     Route: 048
     Dates: start: 20241112
  30. MAXIPIME [Concomitant]
     Active Substance: CEFEPIME HYDROCHLORIDE
     Indication: Pyrexia
     Dosage: TIME INTERVAL: 0.33333333 DAYS: 1 G
     Route: 042
     Dates: start: 20241027, end: 20241103
  31. ANAPROX [Concomitant]
     Active Substance: NAPROXEN SODIUM
     Indication: Pyrexia
     Dosage: 275 MG
     Route: 048
     Dates: start: 20241105, end: 20241113
  32. LEVOPLUS [Concomitant]
     Indication: Infection prophylaxis
     Route: 048
     Dates: start: 20241025, end: 20241028
  33. LEVOPLUS [Concomitant]
     Indication: Infection prophylaxis
     Route: 048
     Dates: start: 20241122, end: 20241126
  34. XYZAL [Concomitant]
     Active Substance: LEVOCETIRIZINE DIHYDROCHLORIDE
     Indication: Rash
     Route: 048
     Dates: start: 20241115, end: 20241121
  35. Yuhan meropen [Concomitant]
     Indication: Pyrexia
     Dosage: TIME INTERVAL: 0.33333333 DAYS: 500 MG
     Route: 042
     Dates: start: 20241104, end: 20241113
  36. Yuhan meropen [Concomitant]
     Indication: Pyrexia
     Dosage: TIME INTERVAL: 0.33333333 DAYS
     Route: 042
     Dates: start: 20241120, end: 20241121
  37. Yuhan meropen [Concomitant]
     Indication: Pyrexia
     Route: 042
     Dates: start: 20241114, end: 20241119
  38. VENTOLIN [Concomitant]
     Active Substance: ALBUTEROL SULFATE
     Indication: Dyspnoea
     Dosage: RES SOLN 5MG/ML
     Route: 055
     Dates: start: 20241108, end: 20241108
  39. ZEMIGLO [Concomitant]
     Indication: Diabetes mellitus
     Dosage: 50 MG
     Route: 048
     Dates: start: 20240930, end: 20241113
  40. PULMICORT TURBUHALER [Concomitant]
     Active Substance: BUDESONIDE
     Indication: Dyspnoea
     Dosage: RESPULE 0.5MG/2ML
     Route: 055
     Dates: start: 20241108, end: 20241111
  41. PULMICORT TURBUHALER [Concomitant]
     Active Substance: BUDESONIDE
     Indication: Dyspnoea
     Dosage: RESPULE 0.5MG/2ML
     Route: 055
     Dates: start: 20241112, end: 20241112
  42. MEPERIDINE HYDROCHLORIDE [Concomitant]
     Active Substance: MEPERIDINE HYDROCHLORIDE
     Indication: Pain prophylaxis
     Dosage: GUJU INJ  25MG/0.5ML
     Route: 030
     Dates: start: 20241119, end: 20241119
  43. LIPITOR [Concomitant]
     Active Substance: ATORVASTATIN CALCIUM
     Indication: Dyslipidaemia
     Dosage: 20 MG
     Route: 048
     Dates: start: 20210831, end: 20241027
  44. PHAZYME [Concomitant]
     Active Substance: DIMETHICONE 410
     Indication: Prophylaxis
     Dosage: TIME INTERVAL: 0.33333333 DAYS: 95MG
     Route: 048
     Dates: start: 20241114, end: 20241120
  45. TACENOL [Concomitant]
     Indication: Pyrexia
     Dosage: 8HOURS ER TAB 650MG
     Route: 048
     Dates: start: 20241028, end: 20241028
  46. ALDACTONE [Concomitant]
     Active Substance: SPIRONOLACTONE
     Indication: Oedema
     Route: 048
     Dates: start: 20241105, end: 20241119
  47. PRUCALOPRIDE SUCCINATE [Concomitant]
     Active Substance: PRUCALOPRIDE SUCCINATE
     Indication: Constipation
     Dosage: FREQUENCY TEXT: PRN
     Route: 048
     Dates: start: 20241115, end: 20241118
  48. PRUCALOPRIDE SUCCINATE [Concomitant]
     Active Substance: PRUCALOPRIDE SUCCINATE
     Indication: Constipation
     Dosage: FREQUENCY TEXT: PRN
     Route: 048
     Dates: start: 20241112, end: 20241118
  49. Topisol [Concomitant]
     Indication: Rash
     Dosage: UNIT DOSE: UNKNOWN GRAM? MILK LOTION 80G?FREQUENCY TEXT: PRN
     Route: 061
     Dates: start: 20241114, end: 20241121
  50. Diclomed [Concomitant]
     Indication: Prophylaxis
     Dosage: UNIT DOSE: UNKNOWN GRASOLUTION 0.074%?FREQUENCY TEXT: PRN
     Route: 050
     Dates: start: 20241108, end: 20241121
  51. Dulcolax [Concomitant]
     Indication: Constipation
     Dosage: UNIT DOSE: 1 PILL
     Route: 054
     Dates: start: 20241118, end: 20241118
  52. LASIX [Concomitant]
     Active Substance: FUROSEMIDE
     Indication: Oedema
     Dosage: FREQUENCY TEXT: PRN
     Route: 042
     Dates: start: 20241028, end: 20241104
  53. LASIX [Concomitant]
     Active Substance: FUROSEMIDE
     Indication: Oedema
     Dosage: FREQUENCY TEXT: PRN
     Route: 042
     Dates: start: 20241108, end: 20241117
  54. Mypol [Concomitant]
     Indication: Pain prophylaxis
     Route: 048
     Dates: start: 20241024, end: 20241025
  55. Mypol [Concomitant]
     Indication: Pain prophylaxis
     Dosage: TIME INTERVAL: 0.33333333 DAYS: FREQUENCY TEXT: PRN
     Route: 048
     Dates: start: 20241120, end: 20241121
  56. TRAMADOL HYDROCHLORIDE [Concomitant]
     Active Substance: TRAMADOL HYDROCHLORIDE
     Indication: Pain prophylaxis
     Dosage: 50MG/ML?FREQUENCY TEXT: PRN
     Route: 042
     Dates: start: 20241116, end: 20241124
  57. DACOGEN [Concomitant]
     Active Substance: DECITABINE
     Indication: Acute myeloid leukaemia
     Route: 042
     Dates: start: 20241025, end: 20241029
  58. HUMULIN R [Concomitant]
     Active Substance: INSULIN HUMAN
     Indication: Diabetes mellitus
     Dosage: 100IU?FREQUENCY TEXT: PRN
     Route: 058
     Dates: start: 20241119
  59. PREDNISOLONE [Concomitant]
     Active Substance: PREDNISOLONE
     Indication: Dyspnoea
     Route: 048
     Dates: start: 20241123
  60. Laevan forte [Concomitant]
     Indication: Constipation
     Dosage: FREQUENCY TEXT: PRN
     Route: 054
     Dates: start: 20241111, end: 20241116
  61. Dexamethasone daewon [Concomitant]
     Indication: Dyspnoea
     Route: 042
     Dates: start: 20241117, end: 20241117
  62. IPRATROPIUM BROMIDE [Concomitant]
     Active Substance: IPRATROPIUM BROMIDE
     Indication: Dyspnoea
     Dosage: SOLN 500MCG/2ML
     Route: 055
     Dates: start: 20241108, end: 20241111
  63. IPRATROPIUM BROMIDE [Concomitant]
     Active Substance: IPRATROPIUM BROMIDE
     Indication: Dyspnoea
     Dosage: SOLN 500MCG/2ML
     Route: 055
     Dates: start: 20241112, end: 20241112
  64. Esomezol [Concomitant]
     Indication: Gastritis prophylaxis
     Route: 048
     Dates: start: 20241113
  65. MAGNESIUM HYDROXIDE [Concomitant]
     Active Substance: MAGNESIUM HYDROXIDE
     Indication: Constipation
     Dosage: 500MG
     Route: 048
     Dates: start: 20241120
  66. MAGNESIUM HYDROXIDE [Concomitant]
     Active Substance: MAGNESIUM HYDROXIDE
     Indication: Constipation
     Dosage: 500MG
     Route: 048
     Dates: start: 20241111, end: 20241111
  67. MEGACE F [Concomitant]
     Indication: Prophylaxis
     Route: 048
     Dates: start: 20241104, end: 20241120
  68. SALON [Concomitant]
     Indication: Pyrexia
     Dosage: UNIT DOSE: 0.5 VIAL
     Route: 042
     Dates: start: 20241107, end: 20241108
  69. SALON [Concomitant]
     Indication: Pyrexia
     Route: 042
     Dates: start: 20241113, end: 20241117
  70. SALON [Concomitant]
     Indication: Pyrexia
     Dosage: UNIT DOSE: 1 VIAL
     Route: 042
     Dates: start: 20241106, end: 20241106
  71. SALON [Concomitant]
     Indication: Pyrexia
     Route: 042
     Dates: start: 20241118, end: 20241122
  72. DIABEX [Concomitant]
     Active Substance: METFORMIN HYDROCHLORIDE
     Indication: Diabetes mellitus
     Route: 048
     Dates: start: 20240930, end: 20241126

REACTIONS (2)
  - Pulmonary alveolar haemorrhage [Recovered/Resolved]
  - Platelet count decreased [Recovered/Resolved]

NARRATIVE: CASE EVENT DATE: 20241027
